FAERS Safety Report 23046212 (Version 3)
Quarter: 2023Q4

REPORT INFORMATION
  Report Type: Spontaneous
  Country: US (occurrence: US)
  Receive Date: 20231009
  Receipt Date: 20231211
  Transmission Date: 20240109
  Serious: Yes (Hospitalization)
  Sender: FDA-Public Use
  Company Number: US-OTSUKA-2023_024501

PATIENT
  Age: 19 Year
  Sex: Male

DRUGS (3)
  1. ABILIFY MAINTENA [Suspect]
     Active Substance: ARIPIPRAZOLE
     Indication: Product used for unknown indication
     Dosage: 400 MG, QM
     Route: 030
     Dates: start: 20230629
  2. PROPRANOLOL [Concomitant]
     Active Substance: PROPRANOLOL HYDROCHLORIDE
     Indication: Anxiety
     Dosage: 10 MG, QD
     Route: 065
  3. FLUOXETINE [Concomitant]
     Active Substance: FLUOXETINE HYDROCHLORIDE
     Indication: Product used for unknown indication
     Dosage: 40 MG, QD
     Route: 065

REACTIONS (5)
  - Mania [Unknown]
  - Product dose omission issue [Unknown]
  - Device defective [Unknown]
  - Product leakage [Unknown]
  - Syringe issue [Unknown]

NARRATIVE: CASE EVENT DATE: 20230914
